FAERS Safety Report 5039465-3 (Version None)
Quarter: 2006Q2

REPORT INFORMATION
  Report Type: 
  Country: None (occurrence: None)
  Receive Date: 20060629
  Receipt Date: 20060607
  Transmission Date: 20061013
  Serious: Yes (Hospitalization, Other)
  Sender: FDA-Public Use
  Company Number: US-AMGEN-US182097

PATIENT
  Sex: Female

DRUGS (8)
  1. ARANESP [Suspect]
     Indication: RENAL TRANSPLANT
     Route: 058
     Dates: start: 20051201, end: 20060602
  2. PROCRIT [Suspect]
     Indication: DIALYSIS
     Dates: start: 20040101, end: 20051101
  3. IMMUNOGLOBULINS [Concomitant]
     Route: 042
     Dates: start: 20050901, end: 20051201
  4. PREDNISONE [Concomitant]
     Dates: start: 20060201
  5. CELLCEPT [Concomitant]
     Dates: start: 20060414, end: 20060602
  6. BACTRIM [Concomitant]
  7. PENTAMIDINE ISETHIONATE [Concomitant]
  8. VALCYTET [Concomitant]

REACTIONS (5)
  - ABDOMINAL DISCOMFORT [None]
  - APLASIA PURE RED CELL [None]
  - DIARRHOEA [None]
  - HYPERGLYCAEMIA [None]
  - PYREXIA [None]
